FAERS Safety Report 7949899-2 (Version None)
Quarter: 2011Q4

REPORT INFORMATION
  Report Type: 
  Country: None (occurrence: None)
  Receive Date: 20111130
  Receipt Date: 20111124
  Transmission Date: 20120403
  Serious: Yes (Other)
  Sender: FDA-Public Use
  Company Number: GB-PFIZER INC-2011276513

PATIENT
  Age: 22 Year
  Sex: Male
  Weight: 87 kg

DRUGS (4)
  1. ZOPICLONE [Concomitant]
     Dosage: UNK
     Route: 065
  2. PREGABALIN [Suspect]
     Indication: PRODUCT USED FOR UNKNOWN INDICATION
     Dosage: 300 MG
     Route: 048
     Dates: start: 20111028, end: 20111028
  3. MIRTAZAPINE [Suspect]
     Indication: DEPRESSION
     Dosage: 15 MG, 1X/DAY
     Route: 048
     Dates: start: 20110324
  4. METHADONE HCL [Suspect]
     Indication: PRODUCT USED FOR UNKNOWN INDICATION
     Dosage: 20 MG, 1X/DAY
     Route: 048
     Dates: start: 20110908

REACTIONS (7)
  - DYSTONIA [None]
  - OFF LABEL USE [None]
  - DRUG ABUSE [None]
  - DYSKINESIA [None]
  - CONVULSION [None]
  - GRAND MAL CONVULSION [None]
  - OCULOGYRIC CRISIS [None]
